FAERS Safety Report 9222308 (Version 1)
Quarter: 2013Q1

REPORT INFORMATION
  Report Type: Spontaneous
  Country: US (occurrence: None)
  Receive Date: 20120914
  Receipt Date: 20120914
  Transmission Date: 20140127
  Serious: Yes (Hospitalization)
  Sender: FDA-Public Use
  Company Number: JPI-P-016022

PATIENT
  Age: 29 Year
  Sex: Female
  Weight: 90.72 kg

DRUGS (7)
  1. XYREM [Suspect]
     Indication: CATAPLEXY
     Route: 048
     Dates: start: 20090713
  2. ALBUTEROL [Concomitant]
  3. BUDESONIDE AND FORMOTEROL FUMARATE DIHYDRATE [Concomitant]
  4. ESTERIFIED ESTROGENS AND METHYLTESTOSTERONE [Concomitant]
  5. PROGESTERONE [Concomitant]
  6. METHYLPHENIDATE [Concomitant]
  7. HYDROCODONE [Concomitant]

REACTIONS (2)
  - Abdominal pain upper [None]
  - Lymphadenopathy [None]
